FAERS Safety Report 7141577-5 (Version None)
Quarter: 2010Q4

REPORT INFORMATION
  Report Type: 
  Country: None (occurrence: None)
  Receive Date: 20101207
  Receipt Date: 20101203
  Transmission Date: 20110411
  Serious: Yes (Death)
  Sender: FDA-Public Use
  Company Number: PHHY2010CN82018

PATIENT
  Age: 33 Year
  Sex: Male
  Weight: 60 kg

DRUGS (1)
  1. GLIVEC [Suspect]
     Indication: CHRONIC MYELOID LEUKAEMIA
     Dosage: UNK
     Dates: start: 20090801

REACTIONS (2)
  - DEATH [None]
  - TREATMENT FAILURE [None]
